FAERS Safety Report 5406794-0 (Version None)
Quarter: 2007Q3

REPORT INFORMATION
  Report Type: 
  Country: None (occurrence: None)
  Receive Date: 20070802
  Receipt Date: 20031008
  Transmission Date: 20080115
  Serious: Yes (Death)
  Sender: FDA-Public Use
  Company Number: 000#5#2003-00357

PATIENT
  Age: 63 Year
  Sex: Female

DRUGS (11)
  1. ROTIGOTINE-30CM? -13.5MG-PATCH (ROTIGOTINE) [Suspect]
     Indication: PARKINSON'S DISEASE
     Dosage: 6 MG/24H (6 MG/24H 1 IN 1 DAY (S)) TRANSDERMAL
     Route: 062
     Dates: start: 20030317, end: 20070627
  2. LEVOTHYROXINE SODIUM [Concomitant]
  3. ASCORBIC ACID, CALCIUM, MAGNESIUM (ASCORBIC ACID, CALCIUM, MAGNESIUM, [Concomitant]
  4. ALENDRONATE SODIUM [Concomitant]
  5. AMOXICILLIN SODIUM, CLAVULANATE POTASSIUM (AMOXICILLIN TRIHYDRATE, CLA [Concomitant]
  6. SPIRONOLACTONE [Concomitant]
  7. BENSERAZIDE HYDROCHLORIDE, LEVODOPA (BENSERAZIDE HYDROCHLORIDE, LEVODO [Concomitant]
  8. PROCYCLIDINE HYDROCHLORIDE 2MG TAB [Concomitant]
  9. DICLOFENAC SODIUM [Concomitant]
  10. ACETAMINOPHEN [Concomitant]
  11. OMEPRAZOLE [Concomitant]

REACTIONS (1)
  - MALFORMATION VENOUS [None]
